FAERS Safety Report 7860848 (Version 3)
Quarter: 2014Q2

REPORT INFORMATION
  Report Type: Spontaneous
  Country: NO (occurrence: NO)
  Receive Date: 20110317
  Receipt Date: 20140625
  Transmission Date: 20141212
  Serious: Yes (Life-Threatening, Hospitalization, Disabling, Other)
  Sender: FDA-Public Use
  Company Number: PHHY2011NO17169

PATIENT
  Age: 69 Year
  Sex: Female
  Weight: 68 kg

DRUGS (13)
  1. TASIGNA [Suspect]
     Indication: CHRONIC MYELOID LEUKAEMIA
     Dosage: 400 MG, BID
     Route: 048
     Dates: start: 20080914, end: 201203
  2. PLAVIX [Concomitant]
     Dosage: 75 MG, QD
     Dates: start: 20100923
  3. PARACET [Concomitant]
     Dosage: 500 MG, 5 TIMES DAILY
  4. NEURONTIN [Concomitant]
     Dosage: 300 MG, 5 TIMES DAILY
  5. NEURONTIN [Concomitant]
     Dosage: 600 MG, 3 TIMES
  6. SOBRIL [Concomitant]
     Dosage: 10 MG IN THE EVENING
  7. ALBYL-E [Concomitant]
     Dosage: 75 MG, ONCE/SINGLE
     Dates: start: 20100923
  8. EXFORGE HCT [Concomitant]
     Dates: start: 201312
  9. KALEORID [Concomitant]
     Dosage: 750 MG, 3 TIMES
  10. LASIX RETARD [Concomitant]
     Dosage: 30 MG, ONCE/SINGLE
     Dates: start: 201312
  11. SEROXAT [Concomitant]
     Dosage: 20 MG, ONCE/SINGLE
  12. SIMVASTATIN [Concomitant]
     Dosage: 20 MG, ONCE/SINGLE
  13. PARALGIN FORTE [Concomitant]

REACTIONS (8)
  - Arteriosclerosis [Recovered/Resolved with Sequelae]
  - Embolism arterial [Recovered/Resolved with Sequelae]
  - Infection [Unknown]
  - Peripheral ischaemia [Recovered/Resolved with Sequelae]
  - Haemoglobin decreased [Unknown]
  - Platelet count increased [Unknown]
  - Gamma-glutamyltransferase increased [Unknown]
  - Alanine aminotransferase increased [Unknown]
